FAERS Safety Report 12883471 (Version 2)
Quarter: 2016Q4

REPORT INFORMATION
  Report Type: Report from Study
  Country: US (occurrence: US)
  Receive Date: 20161025
  Receipt Date: 20161109
  Transmission Date: 20170207
  Serious: Yes (Hospitalization)
  Sender: FDA-Public Use
  Company Number: US-ACTELION-A-US2016-144213

PATIENT
  Age: 58 Year
  Sex: Female

DRUGS (2)
  1. TRACLEER [Suspect]
     Active Substance: BOSENTAN
     Indication: PULMONARY ARTERIAL HYPERTENSION
     Dosage: 125 MG, BID
     Route: 048
     Dates: start: 20140407
  2. WARFARIN [Concomitant]
     Active Substance: WARFARIN

REACTIONS (11)
  - Ear infection [Unknown]
  - Brain abscess [Unknown]
  - Nasopharyngitis [Unknown]
  - Weight decreased [Unknown]
  - Loss of consciousness [Unknown]
  - Meningitis [Unknown]
  - Hydrocephalus [Unknown]
  - Coma [Unknown]
  - Dyspnoea [Unknown]
  - Respiratory failure [Unknown]
  - Bronchitis [Unknown]
